FAERS Safety Report 9477416 (Version 2)
Quarter: 2013Q4

REPORT INFORMATION
  Report Type: Spontaneous
  Country: US (occurrence: US)
  Receive Date: 20130826
  Receipt Date: 20131210
  Transmission Date: 20140711
  Serious: Yes (Hospitalization)
  Sender: FDA-Public Use
  Company Number: US-B.I. PHARMACEUTICALS,INC./RIDGEFIELD-2013-BI-25702BP

PATIENT
  Sex: Female
  Weight: 113 kg

DRUGS (11)
  1. COMBIVENT [Suspect]
     Indication: ASTHMA
     Dosage: STRENGTH: 18 MCG / 103 MCG; DAILY DOSE: 72MCG/400MCG
     Route: 055
     Dates: start: 2001, end: 201306
  2. PREVACID [Concomitant]
     Indication: GASTROOESOPHAGEAL REFLUX DISEASE
     Dosage: 30 MG
     Route: 048
  3. CRESTOR [Concomitant]
     Indication: BLOOD CHOLESTEROL INCREASED
     Dosage: 40 MG
     Route: 048
  4. PULMICORT [Concomitant]
     Indication: ASTHMA
     Route: 055
  5. BENICAR [Concomitant]
     Indication: HYPERTENSION
     Dosage: 40 MG
     Route: 048
  6. PERCOCET [Concomitant]
     Indication: BACK PAIN
     Route: 048
  7. SINGULAIR [Concomitant]
     Indication: ASTHMA
     Dosage: 10 MG
     Route: 048
  8. ASA [Concomitant]
     Dosage: 81 MG
     Route: 048
  9. PROVENTIL [Concomitant]
     Indication: ASTHMA
     Dosage: STRENGTH: 2 PUFFS;
     Route: 055
  10. ALBUTEROL [Concomitant]
  11. NITROGLYCERIN [Concomitant]

REACTIONS (2)
  - Myocardial infarction [Not Recovered/Not Resolved]
  - Off label use [Recovered/Resolved]
